FAERS Safety Report 5361467-8 (Version None)
Quarter: 2007Q2

REPORT INFORMATION
  Report Type: 
  Country: None (occurrence: None)
  Receive Date: 20070619
  Receipt Date: 20070611
  Transmission Date: 20071010
  Serious: Yes (Life-Threatening, Hospitalization)
  Sender: FDA-Public Use
  Company Number: FR-SP-2007-02167

PATIENT
  Age: 84 Year

DRUGS (1)
  1. IMMUCYST [Suspect]
     Dates: start: 20050101

REACTIONS (1)
  - MILIARY PNEUMONIA [None]
